FAERS Safety Report 23515873 (Version 1)
Quarter: 2024Q1

REPORT INFORMATION
  Report Type: Spontaneous
  Country: JP (occurrence: JP)
  Receive Date: 20240213
  Receipt Date: 20240213
  Transmission Date: 20240410
  Serious: Yes (Other)
  Sender: FDA-Public Use
  Company Number: JP-CHUGAI-2024003491

PATIENT

DRUGS (3)
  1. TECENTRIQ [Suspect]
     Active Substance: ATEZOLIZUMAB
     Indication: Non-small cell lung cancer
     Route: 065
     Dates: start: 2024, end: 2024
  2. CARBOPLATIN [Concomitant]
     Active Substance: CARBOPLATIN
     Indication: Non-small cell lung cancer
     Dosage: UNK
  3. PACLITAXEL [Concomitant]
     Active Substance: PACLITAXEL
     Indication: Non-small cell lung cancer
     Dosage: UNK

REACTIONS (2)
  - Disease progression [Unknown]
  - Metastases to bone [Unknown]

NARRATIVE: CASE EVENT DATE: 20240101
